FAERS Safety Report 6283531-1 (Version None)
Quarter: 2009Q3

REPORT INFORMATION
  Report Type: 
  Country: None (occurrence: None)
  Receive Date: 20090721
  Receipt Date: 20090721
  Transmission Date: 20100115
  Serious: Yes (Death)
  Sender: FDA-Public Use
  Company Number: None

PATIENT
  Age: 79 Year
  Sex: Male
  Weight: 70.3075 kg

DRUGS (1)
  1. AMIODARONE HCL [Suspect]
     Indication: ARRHYTHMIA PROPHYLAXIS
     Dosage: 200 MG 2 TIMES A DAY
     Dates: start: 20080606, end: 20080609

REACTIONS (2)
  - CARDIO-RESPIRATORY ARREST [None]
  - PULMONARY TOXICITY [None]
